FAERS Safety Report 16157287 (Version 1)
Quarter: 2019Q2

REPORT INFORMATION
  Report Type: Spontaneous
  Country: US (occurrence: US)
  Receive Date: 20190403
  Receipt Date: 20190403
  Transmission Date: 20190711
  Serious: Yes (Other)
  Sender: FDA-Public Use
  Company Number: None

PATIENT
  Age: 3 Year
  Sex: Female
  Weight: 16.2 kg

DRUGS (7)
  1. MONTELUKAST [Concomitant]
     Active Substance: MONTELUKAST SODIUM
  2. CHILDRENS MOTRIN [Concomitant]
     Active Substance: IBUPROFEN
  3. OSELTAMIVIR GENERIC FOR TAMIFLU [Suspect]
     Active Substance: OSELTAMIVIR
     Indication: INFLUENZA
     Dosage: ORAL TWICE A DAY 1.5 TEASPOON(S)?
     Route: 048
     Dates: start: 20190401, end: 20190401
  4. CLARITIN [Concomitant]
     Active Substance: LORATADINE
  5. CHILDRENS TYLENOL [Concomitant]
     Active Substance: ACETAMINOPHEN
  6. QVAR [Concomitant]
     Active Substance: BECLOMETHASONE DIPROPIONATE
  7. FLINTSTONES COMPLETE VITAMIN [Concomitant]

REACTIONS (4)
  - Confusional state [None]
  - Sleep talking [None]
  - Staring [None]
  - Crying [None]

NARRATIVE: CASE EVENT DATE: 20190401
